FAERS Safety Report 12745356 (Version 3)
Quarter: 2016Q4

REPORT INFORMATION
  Report Type: Spontaneous
  Country: NO (occurrence: NO)
  Receive Date: 20160915
  Receipt Date: 20161118
  Transmission Date: 20170207
  Serious: Yes (Life-Threatening, Other)
  Sender: FDA-Public Use
  Company Number: PHHY2016NO125802

PATIENT
  Age: 75 Year
  Sex: Male

DRUGS (2)
  1. TAFINLAR [Suspect]
     Active Substance: DABRAFENIB MESYLATE
     Indication: MALIGNANT MELANOMA
     Dosage: UNK
     Route: 065
     Dates: start: 20160418, end: 20160621
  2. MEKINIST [Suspect]
     Active Substance: TRAMETINIB DIMETHYL SULFOXIDE
     Indication: MALIGNANT MELANOMA
     Dosage: UNK
     Route: 065
     Dates: start: 20160418, end: 20160621

REACTIONS (11)
  - Dehydration [Unknown]
  - Malignant neoplasm progression [Unknown]
  - Urine output decreased [Unknown]
  - Blood urea increased [Unknown]
  - Blood phosphorus increased [Unknown]
  - Blood creatinine increased [Unknown]
  - Oedema [Unknown]
  - Blood potassium increased [Unknown]
  - Renal failure [Unknown]
  - Lethargy [Unknown]
  - Tumour lysis syndrome [Recovered/Resolved]

NARRATIVE: CASE EVENT DATE: 20160424
